FAERS Safety Report 13040990 (Version 1)
Quarter: 2016Q4

REPORT INFORMATION
  Report Type: Spontaneous
  Country: US (occurrence: US)
  Receive Date: 20161219
  Receipt Date: 20161219
  Transmission Date: 20170207
  Serious: No
  Sender: FDA-Public Use
  Company Number: US-ROCHE-1063034

PATIENT
  Age: 59 Year
  Sex: Male
  Weight: 99.88 kg

DRUGS (1)
  1. ZELBORAF [Suspect]
     Active Substance: VEMURAFENIB
     Indication: METASTATIC MALIGNANT MELANOMA
     Route: 048
     Dates: start: 201204, end: 20121008

REACTIONS (12)
  - Nausea [Unknown]
  - Arthralgia [Unknown]
  - Fatigue [Unknown]
  - Chills [Unknown]
  - Rash [Unknown]
  - Eye pain [Unknown]
  - Skin ulcer [Unknown]
  - Pruritus [Unknown]
  - Myalgia [Unknown]
  - Flushing [Unknown]
  - Sunburn [Unknown]
  - Haemoglobin decreased [Recovered/Resolved]

NARRATIVE: CASE EVENT DATE: 20121001
